FAERS Safety Report 5684301-5 (Version None)
Quarter: 2008Q1

REPORT INFORMATION
  Report Type: 
  Country: None (occurrence: None)
  Receive Date: 20080328
  Receipt Date: 20080319
  Transmission Date: 20080703
  Serious: Yes (Other)
  Sender: FDA-Public Use
  Company Number: US-ABBOTT-08P-163-0443224-00

PATIENT
  Sex: Female
  Weight: 76.272 kg

DRUGS (10)
  1. AZMACORT [Suspect]
     Indication: PULMONARY SARCOIDOSIS
     Route: 055
     Dates: start: 20030101
  2. ACTONEL [Concomitant]
     Indication: DRUG USE FOR UNKNOWN INDICATION
  3. OMEPRAZOLE [Concomitant]
     Indication: DRUG USE FOR UNKNOWN INDICATION
  4. ACETYLSALICYLIC ACID SRT [Concomitant]
     Indication: DRUG USE FOR UNKNOWN INDICATION
  5. BENDROFLUMETHIAZIDE [Concomitant]
     Indication: DRUG USE FOR UNKNOWN INDICATION
  6. PREDNISONE TAB [Concomitant]
     Indication: DRUG USE FOR UNKNOWN INDICATION
  7. PHENYTOIN [Concomitant]
     Indication: DRUG USE FOR UNKNOWN INDICATION
  8. GABATIN [Concomitant]
     Indication: DRUG USE FOR UNKNOWN INDICATION
  9. OSCAL [Concomitant]
     Indication: DRUG USE FOR UNKNOWN INDICATION
  10. SILVER CENTRUM [Concomitant]
     Indication: DRUG USE FOR UNKNOWN INDICATION

REACTIONS (4)
  - BRAIN NEOPLASM [None]
  - MENINGIOMA [None]
  - PULMONARY SARCOIDOSIS [None]
  - UNDERDOSE [None]
